FAERS Safety Report 8060652-4 (Version None)
Quarter: 2012Q1

REPORT INFORMATION
  Report Type: 
  Country: None (occurrence: None)
  Receive Date: 20120120
  Receipt Date: 20120117
  Transmission Date: 20120608
  Serious: Yes (Hospitalization, Other)
  Sender: FDA-Public Use
  Company Number: US-PFIZER INC-2009266664

PATIENT
  Sex: Female

DRUGS (6)
  1. DILANTIN [Suspect]
     Dosage: 150 MG, UNK
     Route: 042
     Dates: start: 19921025
  2. DILANTIN [Suspect]
     Dosage: 50 MG, UNK
     Route: 048
     Dates: start: 19921025
  3. DILANTIN [Suspect]
     Indication: CONVULSION
     Dosage: 50 MG, 2X/DAY
     Route: 048
     Dates: start: 19921024
  4. DILANTIN [Suspect]
     Dosage: 50MG EVERY MORNING AND 75MG EVERY NIGHT
     Route: 048
     Dates: start: 19921001
  5. DILANTIN [Suspect]
     Dosage: 150 MG, UNK
     Route: 042
     Dates: start: 20081025
  6. RIFAMPIN [Concomitant]
     Indication: TUBERCULOSIS
     Dosage: UNK

REACTIONS (1)
  - STEVENS-JOHNSON SYNDROME [None]
